FAERS Safety Report 7483076-7 (Version None)
Quarter: 2011Q2

REPORT INFORMATION
  Report Type: 
  Country: None (occurrence: None)
  Receive Date: 20110516
  Receipt Date: 20110412
  Transmission Date: 20111010
  Serious: Yes (Hospitalization, Other)
  Sender: FDA-Public Use
  Company Number: US-BAYER-201039679NA

PATIENT
  Age: 26 Year
  Sex: Female
  Weight: 71.202 kg

DRUGS (3)
  1. ACIPHEX [Concomitant]
     Indication: GASTROOESOPHAGEAL REFLUX DISEASE
  2. PROTONIX [Concomitant]
     Indication: GASTROOESOPHAGEAL REFLUX DISEASE
  3. YASMIN [Suspect]
     Indication: CONTRACEPTION
     Dosage: UNK UNK, QD
     Route: 048
     Dates: start: 20060201

REACTIONS (1)
  - CHOLECYSTITIS CHRONIC [None]
